FAERS Safety Report 5387148-2 (Version None)
Quarter: 2007Q3

REPORT INFORMATION
  Report Type: 
  Country: None (occurrence: None)
  Receive Date: 20070711
  Receipt Date: 20070626
  Transmission Date: 20080115
  Serious: Yes (Hospitalization)
  Sender: FDA-Public Use
  Company Number: 158358USA

PATIENT
  Age: 54 Year
  Sex: Male
  Weight: 93.4 kg

DRUGS (12)
  1. FLUOROURACIL [Suspect]
     Indication: COLON CANCER
     Dosage: DAY 1-3; INTERVAL, INTRAVENOUS (NOT OTHERWISE SPECIFIED)
     Route: 042
     Dates: start: 20061108
  2. FOLINIC ACID [Suspect]
     Indication: COLON CANCER
     Dosage: DAY 1-3 INTERVAL, INTRAVENOUS (NOT OTHERWISE SPECIFIED)
     Route: 042
     Dates: start: 20061108
  3. OXALIPLATIN [Suspect]
     Indication: COLON CANCER
     Dosage: DAY 1-3 INTERVAL, INTRAVENOUS (NOT OTHERWISE SPECIFIED)
     Route: 042
     Dates: start: 20061108
  4. AG-013736 [Suspect]
     Indication: COLON CANCER
     Dosage: 0  MG (5 MG, 2 IN 1 D), ORAL
     Route: 048
     Dates: start: 20061110, end: 20070126
  5. METFORMIN HCL [Concomitant]
  6. DYAZIDE [Concomitant]
  7. PROCHLORPERAZINE EDISYLATE [Concomitant]
  8. TEMAZEPAM [Concomitant]
  9. SENNA ALEXANDRINA [Concomitant]
  10. VICODIN [Concomitant]
  11. LISINOPRIL [Concomitant]
  12. EPOGEN [Concomitant]

REACTIONS (1)
  - ABDOMINAL PAIN [None]
